FAERS Safety Report 8336298-7 (Version None)
Quarter: 2012Q2

REPORT INFORMATION
  Report Type: 
  Country: None (occurrence: None)
  Receive Date: 20120504
  Receipt Date: 20120427
  Transmission Date: 20120825
  Serious: Yes (Other)
  Sender: FDA-Public Use
  Company Number: PHHY2012MX037167

PATIENT
  Sex: Female

DRUGS (3)
  1. DIOVAN HCT [Suspect]
     Indication: HYPERTENSION
     Dosage: 160/25MG PER DAY
     Route: 048
  2. DICLOFENAC [Concomitant]
     Dosage: UNK
     Dates: start: 20120411
  3. ASPIRIN [Concomitant]
     Dosage: 1 DF, PER DAY
     Dates: start: 20120411

REACTIONS (2)
  - UPPER LIMB FRACTURE [None]
  - FALL [None]
